FAERS Safety Report 15970443 (Version 1)
Quarter: 2019Q1

REPORT INFORMATION
  Report Type: Report from Study
  Country: US (occurrence: US)
  Receive Date: 20190215
  Receipt Date: 20190215
  Transmission Date: 20190418
  Serious: Yes (Life-Threatening, Hospitalization)
  Sender: FDA-Public Use
  Company Number: US-BRISTOL-MYERS SQUIBB COMPANY-BMS-2019-014400

PATIENT
  Age: 14 Year
  Sex: Male
  Weight: 59.6 kg

DRUGS (1)
  1. DASATINIB. [Suspect]
     Active Substance: DASATINIB
     Indication: B PRECURSOR TYPE ACUTE LEUKAEMIA
     Dosage: 2205 MG, UNK
     Route: 042
     Dates: start: 20181226, end: 20190115

REACTIONS (2)
  - Dizziness [Recovered/Resolved]
  - Cognitive disorder [Recovered/Resolved]

NARRATIVE: CASE EVENT DATE: 20190115
